FAERS Safety Report 20115270 (Version 1)
Quarter: 2021Q4

REPORT INFORMATION
  Report Type: Spontaneous
  Country: NL (occurrence: NL)
  Receive Date: 20211125
  Receipt Date: 20211125
  Transmission Date: 20220303
  Serious: Yes (Other)
  Sender: FDA-Public Use
  Company Number: NL-LRB-00710611

PATIENT
  Age: 49 Year
  Sex: Male
  Weight: 89 kg

DRUGS (2)
  1. ROSUVASTATIN [Suspect]
     Active Substance: ROSUVASTATIN
     Indication: Hypercholesterolaemia
     Dosage: 10 MILLIGRAM, DAILY, 1 TIME A DAY
     Route: 065
     Dates: start: 20211105
  2. FENPROCOUMON TABLET 3MG / Brand name not specified [Concomitant]
     Indication: Product used for unknown indication
     Dosage: TABLET, 3 MG (MILLIGRAM), UNK
     Route: 065

REACTIONS (3)
  - Erectile dysfunction [Not Recovered/Not Resolved]
  - Muscle discomfort [Not Recovered/Not Resolved]
  - Abdominal discomfort [Not Recovered/Not Resolved]

NARRATIVE: CASE EVENT DATE: 20211106
